FAERS Safety Report 13929279 (Version 1)
Quarter: 2017Q3

REPORT INFORMATION
  Report Type: Spontaneous
  Country: CA (occurrence: CA)
  Receive Date: 20170901
  Receipt Date: 20170901
  Transmission Date: 20171127
  Serious: Yes (Life-Threatening, Hospitalization, Other)
  Sender: FDA-Public Use
  Company Number: None

PATIENT
  Age: 62 Year
  Sex: Female
  Weight: 81 kg

DRUGS (6)
  1. ARIMIDEX [Suspect]
     Active Substance: ANASTROZOLE
     Indication: BREAST CANCER
     Route: 048
     Dates: start: 20170313, end: 20170801
  2. NORVASC [Concomitant]
     Active Substance: AMLODIPINE BESYLATE
  3. VITAMIN B3 [Concomitant]
     Active Substance: NIACIN
  4. COVERSYL [Concomitant]
     Active Substance: PERINDOPRIL
  5. NASONEX [Concomitant]
     Active Substance: MOMETASONE FUROATE
  6. SYMBICORT [Concomitant]
     Active Substance: BUDESONIDE\FORMOTEROL FUMARATE DIHYDRATE

REACTIONS (5)
  - Syncope [None]
  - Atrioventricular block second degree [None]
  - Loss of consciousness [None]
  - Presyncope [None]
  - Atrioventricular block complete [None]

NARRATIVE: CASE EVENT DATE: 20170727
